FAERS Safety Report 19009719 (Version 1)
Quarter: 2021Q1

REPORT INFORMATION
  Report Type: Report from Study
  Country: BR (occurrence: BR)
  Receive Date: 20210315
  Receipt Date: 20210315
  Transmission Date: 20210420
  Serious: Yes (Life-Threatening, Hospitalization, Other)
  Sender: FDA-Public Use
  Company Number: BR-TAKEDA-BR202015090

PATIENT
  Sex: Male
  Weight: 14.79 kg

DRUGS (3)
  1. IDURSULFASE [Suspect]
     Active Substance: IDURSULFASE
     Dosage: UNK
     Route: 042
  2. IDURSULFASE [Suspect]
     Active Substance: IDURSULFASE
     Dosage: UNK
     Route: 065
     Dates: start: 201805
  3. IDURSULFASE [Suspect]
     Active Substance: IDURSULFASE
     Indication: MUCOPOLYSACCHARIDOSIS II
     Dosage: UNK
     Route: 065

REACTIONS (15)
  - Pneumonia [Recovered/Resolved]
  - Infusion related hypersensitivity reaction [Unknown]
  - Gait inability [Unknown]
  - Product availability issue [Unknown]
  - Infusion related reaction [Unknown]
  - Hypersensitivity [Unknown]
  - Inappropriate schedule of product administration [Not Recovered/Not Resolved]
  - Stress [Unknown]
  - Unevaluable event [Unknown]
  - Weight increased [Unknown]
  - Lip oedema [Unknown]
  - Illness [Unknown]
  - Condition aggravated [Unknown]
  - Product dose omission issue [Unknown]
  - Tongue oedema [Recovered/Resolved]
